FAERS Safety Report 4499670-1 (Version None)
Quarter: 2004Q4

REPORT INFORMATION
  Report Type: 
  Country: None (occurrence: None)
  Receive Date: 20041112
  Receipt Date: 20040910
  Transmission Date: 20050328
  Serious: Yes (Disabling, Other)
  Sender: FDA-Public Use
  Company Number: US-ABBOTT-04P-163-0272941-00

PATIENT
  Sex: Female
  Weight: 137.4 kg

DRUGS (5)
  1. VICODIN [Suspect]
     Indication: PAIN
     Dates: start: 20040801
  2. VICODIN [Suspect]
     Indication: PYREXIA
  3. HYDROCHLORTHIAZIDE/LISINOPRIL [Suspect]
     Indication: HYPERTENSION
     Route: 048
     Dates: start: 20040501, end: 20040808
  4. CARBAMAZEPINE [Concomitant]
     Indication: NEURALGIA
     Dates: start: 20040601
  5. ACETAMINOPHEN [Concomitant]
     Indication: DRUG USE FOR UNKNOWN INDICATION

REACTIONS (7)
  - BALANCE DISORDER [None]
  - DIFFICULTY IN WALKING [None]
  - HYPOAESTHESIA [None]
  - PRURITUS [None]
  - RASH GENERALISED [None]
  - RASH MACULO-PAPULAR [None]
  - RHABDOMYOLYSIS [None]
